FAERS Safety Report 7146605-9 (Version None)
Quarter: 2010Q4

REPORT INFORMATION
  Report Type: 
  Country: None (occurrence: None)
  Receive Date: 20101208
  Receipt Date: 20101112
  Transmission Date: 20110411
  Serious: No
  Sender: FDA-Public Use
  Company Number: US-PFIZER INC-2010150969

PATIENT
  Sex: Female

DRUGS (2)
  1. ADVIL [Suspect]
  2. ANTIBIOTICS [Suspect]

REACTIONS (1)
  - URTICARIA [None]
